FAERS Safety Report 4799001-3 (Version None)
Quarter: 2005Q4

REPORT INFORMATION
  Report Type: 
  Country: None (occurrence: None)
  Receive Date: 20051014
  Receipt Date: 20030813
  Transmission Date: 20060501
  Serious: Yes (Other)
  Sender: FDA-Public Use
  Company Number: US-AMGEN-US045009

PATIENT
  Sex: Female
  Weight: 83.5 kg

DRUGS (12)
  1. ENBREL [Suspect]
     Indication: RHEUMATOID ARTHRITIS
     Route: 058
     Dates: start: 20000301
  2. CELEBREX [Concomitant]
     Dates: start: 20000101
  3. PREDNISONE [Concomitant]
     Dates: start: 20000101
  4. DIOVAN [Concomitant]
  5. COLESTID [Concomitant]
     Dates: start: 20010101
  6. PRILOSEC [Concomitant]
  7. MINOCYCLINE [Concomitant]
     Dates: start: 20030701
  8. PREVACID [Concomitant]
  9. CALCIUM GLUCONATE [Concomitant]
  10. VITAMIN D [Concomitant]
  11. VITAMIN CAP [Concomitant]
  12. L-LYSINE [Concomitant]

REACTIONS (2)
  - ANAEMIA [None]
  - LEUKOCYTOCLASTIC VASCULITIS [None]
